FAERS Safety Report 20517503 (Version 2)
Quarter: 2022Q1

REPORT INFORMATION
  Report Type: Report from Study
  Country: AU (occurrence: AU)
  Receive Date: 20220225
  Receipt Date: 20220303
  Transmission Date: 20220423
  Serious: Yes (Other)
  Sender: FDA-Public Use
  Company Number: AU-BAYER-2022A026076

PATIENT

DRUGS (1)
  1. EYLEA [Suspect]
     Active Substance: AFLIBERCEPT
     Indication: Neovascular age-related macular degeneration
     Dosage: 3 DOSES ADMINISTERED
     Route: 031
     Dates: start: 20210908

REACTIONS (2)
  - Blindness transient [Recovering/Resolving]
  - Anaesthetic complication [Unknown]

NARRATIVE: CASE EVENT DATE: 20210908
